FAERS Safety Report 6217948-8 (Version None)
Quarter: 2009Q2

REPORT INFORMATION
  Report Type: 
  Country: None (occurrence: None)
  Receive Date: 20090608
  Receipt Date: 20090525
  Transmission Date: 20091009
  Serious: Yes (Hospitalization, Other)
  Sender: FDA-Public Use
  Company Number: SE-ELI_LILLY_AND_COMPANY-SE200906000928

PATIENT
  Age: 62 Year
  Sex: Male

DRUGS (11)
  1. ALIMTA [Suspect]
     Dosage: 800 MG, UNKNOWN
     Route: 042
     Dates: start: 20060302, end: 20060306
  2. CARBOPLATIN [Concomitant]
     Dosage: 325 MG, UNKNOWN
     Route: 042
     Dates: start: 20060302, end: 20060306
  3. OXIS TURBUHALER [Concomitant]
     Dosage: 9 UG, UNKNOWN
     Route: 055
  4. LANSOPRAZOLE [Concomitant]
     Dosage: 15 MG, UNKNOWN
     Route: 048
  5. SPIRIVA [Concomitant]
     Dosage: 18 UG, UNKNOWN
     Route: 055
  6. FRAGMIN [Concomitant]
     Dosage: 25000 IE/ML, UNKNOWN
     Route: 065
  7. BEHEPAN [Concomitant]
     Dosage: 1 MG, UNKNOWN
     Route: 065
  8. LASIX [Concomitant]
     Dosage: 60 MG, UNKNOWN
     Route: 065
  9. KALIUM /00031402/ [Concomitant]
     Dosage: 750 MG, UNKNOWN
     Route: 065
  10. NORMORIX [Concomitant]
     Dosage: 2.5MG/25MG, UNKNOWN
     Route: 065
  11. TRIOBE [Concomitant]
     Dosage: UNK, UNKNOWN
     Route: 065

REACTIONS (4)
  - BLOOD CREATININE INCREASED [None]
  - CONVULSION [None]
  - MUSCLE SPASMS [None]
  - THROMBOTIC THROMBOCYTOPENIC PURPURA [None]
